FAERS Safety Report 20372925 (Version 1)
Quarter: 2022Q1

REPORT INFORMATION
  Report Type: Report from Study
  Country: US (occurrence: US)
  Receive Date: 20220125
  Receipt Date: 20220125
  Transmission Date: 20220423
  Serious: Yes (Hospitalization)
  Sender: FDA-Public Use
  Company Number: US-ABBVIE-22K-163-4246834-00

PATIENT
  Sex: Female

DRUGS (1)
  1. VENCLEXTA [Suspect]
     Active Substance: VENETOCLAX
     Indication: Chronic lymphocytic leukaemia
     Route: 048
     Dates: start: 201807

REACTIONS (8)
  - COVID-19 [Unknown]
  - Disorientation [Unknown]
  - Asthenia [Unknown]
  - Hypophagia [Unknown]
  - Blood pressure decreased [Unknown]
  - Dizziness [Unknown]
  - Fall [Unknown]
  - Dysuria [Unknown]
